FAERS Safety Report 4701129-0 (Version None)
Quarter: 2005Q2

REPORT INFORMATION
  Report Type: 
  Country: None (occurrence: None)
  Receive Date: 20050628
  Receipt Date: 20050617
  Transmission Date: 20051028
  Serious: Yes (Hospitalization, Other)
  Sender: FDA-Public Use
  Company Number: US-GLAXOSMITHKLINE-A0563167A

PATIENT
  Sex: Female

DRUGS (3)
  1. ZIAGEN [Suspect]
     Indication: HIV INFECTION
     Route: 048
     Dates: start: 20050513, end: 20050603
  2. REYATAZ [Concomitant]
  3. NORVIR [Concomitant]

REACTIONS (5)
  - DIARRHOEA [None]
  - DYSPNOEA [None]
  - HYPERSENSITIVITY [None]
  - PNEUMOCYSTIS JIROVECI PNEUMONIA [None]
  - RASH [None]
